FAERS Safety Report 10457359 (Version 1)
Quarter: 2014Q3

REPORT INFORMATION
  Report Type: Spontaneous
  Country: JP (occurrence: JP)
  Receive Date: 20140916
  Receipt Date: 20140916
  Transmission Date: 20150326
  Serious: Yes (Other)
  Sender: FDA-Public Use
  Company Number: JP-ASTRAZENECA-2014SE68446

PATIENT
  Age: 70 Year
  Sex: Male

DRUGS (1)
  1. ANAPEINE [Suspect]
     Active Substance: ROPIVACAINE HYDROCHLORIDE
     Indication: NERVE BLOCK
     Dosage: 0.75% 10 ML, 75 MG
     Route: 053
     Dates: start: 20140723, end: 20140723

REACTIONS (2)
  - Convulsion [Recovered/Resolved]
  - Dysarthria [Recovered/Resolved]

NARRATIVE: CASE EVENT DATE: 20140723
